FAERS Safety Report 6983160-8 (Version None)
Quarter: 2010Q3

REPORT INFORMATION
  Report Type: 
  Country: None (occurrence: None)
  Receive Date: 20100914
  Receipt Date: 20100720
  Transmission Date: 20110219
  Serious: No
  Sender: FDA-Public Use
  Company Number: US-PFIZER INC-2010073878

PATIENT
  Sex: Female
  Weight: 68.027 kg

DRUGS (9)
  1. LYRICA [Suspect]
     Indication: PAIN
     Dosage: 150 MG, 2X/DAY
     Route: 048
  2. LYRICA [Suspect]
     Indication: FIBROMYALGIA
  3. LYRICA [Suspect]
     Indication: RHEUMATOID ARTHRITIS
  4. HYDROCODONE [Concomitant]
     Indication: RHEUMATOID ARTHRITIS
     Dosage: 750 MG, 3X/DAY
     Route: 048
  5. HYDROCODONE [Concomitant]
     Indication: FIBROMYALGIA
  6. OXYCONTIN [Concomitant]
     Indication: RHEUMATOID ARTHRITIS
     Dosage: 80 MG, 2X/DAY
     Route: 048
  7. OXYCONTIN [Concomitant]
     Indication: PAIN
  8. WARFARIN SODIUM [Concomitant]
     Indication: PROTEIN S DEFICIENCY
     Dosage: UNK MG, UNK
     Route: 048
  9. VITAMINS [Concomitant]
     Dosage: UNK

REACTIONS (2)
  - DRUG INEFFECTIVE [None]
  - PAIN [None]
